FAERS Safety Report 22768712 (Version 4)
Quarter: 2023Q4

REPORT INFORMATION
  Report Type: Spontaneous
  Country: US (occurrence: US)
  Receive Date: 20230731
  Receipt Date: 20231023
  Transmission Date: 20240110
  Serious: No
  Sender: FDA-Public Use
  Company Number: US-PFIZER INC-PV202300130335

PATIENT
  Age: 82 Year
  Sex: Female
  Weight: 138 kg

DRUGS (1)
  1. IBRANCE [Suspect]
     Active Substance: PALBOCICLIB
     Indication: Breast cancer metastatic
     Dosage: DAILY DAYS 1-21 EVERY 28 DAYS
     Route: 048

REACTIONS (1)
  - Hypoacusis [Unknown]
